FAERS Safety Report 5760861-0 (Version None)
Quarter: 2008Q2

REPORT INFORMATION
  Report Type: 
  Country: None (occurrence: None)
  Receive Date: 20080606
  Receipt Date: 20080526
  Transmission Date: 20081010
  Serious: Yes (Other)
  Sender: FDA-Public Use
  Company Number: JP-WYE-H04373908

PATIENT

DRUGS (5)
  1. AMIODARONE HCL [Suspect]
     Indication: HYPERTROPHIC CARDIOMYOPATHY
     Dosage: DOSE AND FREQUENCY NOT SPECIFIED
     Route: 042
     Dates: start: 20080511, end: 20080511
  2. AMIODARONE HCL [Suspect]
     Indication: ATRIAL FIBRILLATION
  3. SELOKEN [Concomitant]
     Dosage: DOSE AND FREQUENCY NOT SPECIFIED
     Route: 065
  4. AMIODARONE HCL [Suspect]
     Route: 048
     Dates: start: 20080511, end: 20080513
  5. AMIODARONE HCL [Suspect]
     Indication: ARRHYTHMIA

REACTIONS (1)
  - BLOOD BILIRUBIN INCREASED [None]
